FAERS Safety Report 7580317-2 (Version None)
Quarter: 2011Q2

REPORT INFORMATION
  Report Type: 
  Country: None (occurrence: None)
  Receive Date: 20110629
  Receipt Date: 20110617
  Transmission Date: 20111010
  Serious: Yes (Other)
  Sender: FDA-Public Use
  Company Number: FR-ROCHE-726450

PATIENT
  Sex: Male
  Weight: 68 kg

DRUGS (8)
  1. DELURSAN [Concomitant]
     Indication: CHOLESTASIS
     Route: 048
     Dates: start: 20100526
  2. FLODIL LP [Concomitant]
     Indication: HYPERTENSION
     Dates: start: 20100127
  3. CYCLOSPORINE [Concomitant]
  4. BIPRETERAX [Concomitant]
     Indication: HYPERTENSION
     Route: 048
     Dates: start: 20100127
  5. NEORAL [Concomitant]
     Indication: PROPHYLAXIS AGAINST TRANSPLANT REJECTION
     Route: 048
     Dates: start: 20100310
  6. RIBAVIRIN [Suspect]
     Route: 048
     Dates: start: 20100310, end: 20100629
  7. CELLCEPT [Concomitant]
  8. PEGINTERFERON ALFA-2A [Suspect]
     Route: 058
     Dates: start: 20100310, end: 20100629

REACTIONS (1)
  - LIVER TRANSPLANT REJECTION [None]
